FAERS Safety Report 8401746-0 (Version None)
Quarter: 2012Q2

REPORT INFORMATION
  Report Type: 
  Country: None (occurrence: None)
  Receive Date: 20120529
  Receipt Date: 20090617
  Transmission Date: 20120825
  Serious: Yes (Hospitalization, Other)
  Sender: FDA-Public Use
  Company Number: 006575

PATIENT
  Age: 61 Year
  Sex: Male
  Weight: 76 kg

DRUGS (6)
  1. DEPAS (ETIZOLAM) [Concomitant]
  2. ASPIRIN [Concomitant]
  3. ALTAT (ROXATIDINE ACETATE HYDROCHLORIDE) [Concomitant]
  4. RADICUT (EDARAVONE) [Concomitant]
  5. PLETAL [Suspect]
     Indication: MYOCARDIAL INFARCTION
     Dosage: 50 MG, TID, ORAL
     Route: 048
     Dates: end: 20090525
  6. GLYCEOL (CONCENTRATED [Concomitant]

REACTIONS (7)
  - STAPHYLOCOCCUS TEST POSITIVE [None]
  - DIARRHOEA [None]
  - INSOMNIA [None]
  - GASTRITIS [None]
  - COLONIC POLYP [None]
  - ENTERITIS INFECTIOUS [None]
  - DEHYDRATION [None]
